FAERS Safety Report 21549068 (Version 1)
Quarter: 2022Q4

REPORT INFORMATION
  Report Type: Spontaneous
  Country: BA (occurrence: BA)
  Receive Date: 20221103
  Receipt Date: 20221103
  Transmission Date: 20230113
  Serious: Yes (Other)
  Sender: FDA-Public Use
  Company Number: BA-PFIZER INC-PV202200090753

PATIENT
  Age: 44 Year
  Sex: Female

DRUGS (6)
  1. PALBOCICLIB [Suspect]
     Active Substance: PALBOCICLIB
     Dosage: 125 MG 21/7 DAYS
     Dates: start: 202008
  2. RIBOCICLIB [Suspect]
     Active Substance: RIBOCICLIB
     Dosage: 600 MG, 1X/DAY, 21/7 DAYS
     Dates: end: 202206
  3. RANITIDINE HYDROCHLORIDE [Concomitant]
     Active Substance: RANITIDINE HYDROCHLORIDE
     Dosage: UNK
  4. FULVESTRANT [Concomitant]
     Active Substance: FULVESTRANT
     Dosage: UNK
  5. PACLITAXEL [Concomitant]
     Active Substance: PACLITAXEL
     Dosage: UNK
  6. CARBOPLATIN [Concomitant]
     Active Substance: CARBOPLATIN
     Dosage: UNK

REACTIONS (19)
  - Neutropenia [Unknown]
  - Leukopenia [Unknown]
  - Choking [Unknown]
  - Asphyxia [Unknown]
  - Gastric disorder [Unknown]
  - Decreased appetite [Unknown]
  - Rash [Unknown]
  - Erythema [Unknown]
  - Nausea [Unknown]
  - Blood creatinine increased [Unknown]
  - Abdominal pain upper [Unknown]
  - Gastritis [Unknown]
  - Flatulence [Unknown]
  - Weight decreased [Unknown]
  - Asthenia [Unknown]
  - Fatigue [Unknown]
  - Peripheral swelling [Unknown]
  - Back pain [Unknown]
  - Vomiting [Unknown]

NARRATIVE: CASE EVENT DATE: 20210201
